FAERS Safety Report 20128504 (Version 1)
Quarter: 2021Q4

REPORT INFORMATION
  Report Type: Report from Study
  Country: US (occurrence: US)
  Receive Date: 20211130
  Receipt Date: 20211130
  Transmission Date: 20220303
  Serious: Yes (Hospitalization, Other)
  Sender: FDA-Public Use
  Company Number: US-SANOFI-00659677

PATIENT
  Age: 42 Year
  Sex: Female

DRUGS (1)
  1. DUPILUMAB [Suspect]
     Active Substance: DUPILUMAB
     Indication: Nasal polyps
     Dosage: 300 MG, QOW
     Route: 058
     Dates: start: 20210704

REACTIONS (8)
  - Brain oedema [Not Recovered/Not Resolved]
  - Spinal disorder [Recovering/Resolving]
  - Paranasal sinus discomfort [Not Recovered/Not Resolved]
  - Localised oedema [Not Recovered/Not Resolved]
  - Neutrophil count increased [Recovering/Resolving]
  - Eosinophil count increased [Recovering/Resolving]
  - Blood pressure abnormal [Recovering/Resolving]
  - Eye discharge [Recovering/Resolving]
